FAERS Safety Report 11797187 (Version 1)
Quarter: 2015Q4

REPORT INFORMATION
  Report Type: Spontaneous
  Country: CN (occurrence: CN)
  Receive Date: 20151203
  Receipt Date: 20151203
  Transmission Date: 20160305
  Serious: Yes (Other)
  Sender: FDA-Public Use
  Company Number: CN-PFIZER INC-2015410568

PATIENT
  Age: 84 Year
  Sex: Male

DRUGS (1)
  1. CELECOXIB. [Suspect]
     Active Substance: CELECOXIB
     Indication: BACK PAIN
     Dosage: 0.2 G, 2X/DAY
     Route: 048
     Dates: start: 20120428, end: 20120501

REACTIONS (4)
  - Haemolytic anaemia [Recovered/Resolved]
  - Blood bilirubin unconjugated increased [Recovered/Resolved]
  - Yellow skin [Unknown]
  - Jaundice [Unknown]

NARRATIVE: CASE EVENT DATE: 20120501
